FAERS Safety Report 17119334 (Version 2)
Quarter: 2020Q1

REPORT INFORMATION
  Report Type: Spontaneous
  Country: IT (occurrence: IT)
  Receive Date: 20191206
  Receipt Date: 20200217
  Transmission Date: 20200409
  Serious: Yes (Death, Hospitalization, Other)
  Sender: FDA-Public Use
  Company Number: IT-DRREDDYS-USA/ITL/19/0116968

PATIENT
  Age: 64 Year
  Sex: Male

DRUGS (4)
  1. AMPHOTERICIN-B-LIPOSOMAL [Suspect]
     Active Substance: AMPHOTERICIN B
     Indication: GEOTRICHUM INFECTION
     Route: 065
  2. VORICONAZOLE. [Suspect]
     Active Substance: VORICONAZOLE
     Indication: GEOTRICHUM INFECTION
     Route: 065
  3. MICAFUNGIN. [Concomitant]
     Active Substance: MICAFUNGIN SODIUM
     Indication: PRODUCT USED FOR UNKNOWN INDICATION
  4. DAPTOMYCIN FOR INJECTION [Suspect]
     Active Substance: DAPTOMYCIN
     Indication: ENTEROCOCCAL INFECTION
     Dosage: HIGH DOSE
     Route: 065

REACTIONS (6)
  - Geotrichum infection [Unknown]
  - Multiple organ dysfunction syndrome [Fatal]
  - Respiratory distress [Unknown]
  - Diarrhoea [Unknown]
  - Pyrexia [Unknown]
  - Drug ineffective [Unknown]
